FAERS Safety Report 4664029-0 (Version None)
Quarter: 2005Q2

REPORT INFORMATION
  Report Type: 
  Country: None (occurrence: None)
  Receive Date: 20050516
  Receipt Date: 20050516
  Transmission Date: 20051028
  Serious: Yes (Life-Threatening, Disabling)
  Sender: FDA-Public Use
  Company Number: None

PATIENT
  Age: 74 Year
  Sex: Male

DRUGS (8)
  1. VANCOMYCIN [Suspect]
     Indication: ENDOCARDITIS
     Dosage: INTRAVENOUS; 1.0 GRAM
     Route: 042
     Dates: start: 20050316, end: 20050421
  2. VANCOMYCIN [Suspect]
     Indication: STAPHYLOCOCCAL INFECTION
     Dosage: INTRAVENOUS; 1.0 GRAM
     Route: 042
     Dates: start: 20050316, end: 20050421
  3. ZOSYN [Concomitant]
  4. AUGMENTIN '125' [Concomitant]
  5. UNASYN [Concomitant]
  6. CIPROFLOXACIN [Concomitant]
  7. VANCOMYCIN [Concomitant]
  8. METRONIDAZOLE [Concomitant]

REACTIONS (6)
  - HAEMODIALYSIS [None]
  - MENTAL STATUS CHANGES [None]
  - MULTIPLE SCLEROSIS [None]
  - NEPHRITIS INTERSTITIAL [None]
  - RASH ERYTHEMATOUS [None]
  - RENAL FAILURE ACUTE [None]
